FAERS Safety Report 10768431 (Version 1)
Quarter: 2015Q1

REPORT INFORMATION
  Report Type: Spontaneous
  Country: FR (occurrence: FR)
  Receive Date: 20150206
  Receipt Date: 20150206
  Transmission Date: 20150721
  Serious: Yes (Death, Hospitalization)
  Sender: FDA-Public Use
  Company Number: FR-BRISTOL-MYERS SQUIBB COMPANY-BMS-2015-004661

PATIENT
  Age: 38 Year
  Sex: Male

DRUGS (1)
  1. COUMADINE [Suspect]
     Active Substance: WARFARIN SODIUM
     Indication: PHLEBITIS
     Dosage: UNK
     Route: 065
     Dates: end: 20140422

REACTIONS (6)
  - Intestinal ischaemia [Fatal]
  - Overdose [Unknown]
  - Muscle haemorrhage [Unknown]
  - International normalised ratio increased [Unknown]
  - Thrombosis [Unknown]
  - Haematoma infection [Unknown]

NARRATIVE: CASE EVENT DATE: 20140422
